FAERS Safety Report 17284291 (Version 1)
Quarter: 2020Q1

REPORT INFORMATION
  Report Type: Spontaneous
  Country: US (occurrence: US)
  Receive Date: 20200117
  Receipt Date: 20200117
  Transmission Date: 20200409
  Serious: Yes (Other)
  Sender: FDA-Public Use
  Company Number: US-ASTRAZENECA-2020SE05460

PATIENT
  Age: 28307 Day
  Sex: Male
  Weight: 100.7 kg

DRUGS (15)
  1. METOPROLOL. [Concomitant]
     Active Substance: METOPROLOL
     Route: 048
  2. IRON [Concomitant]
     Active Substance: IRON
     Route: 048
  3. TRESIBA [Concomitant]
     Active Substance: INSULIN DEGLUDEC
     Indication: DIABETES MELLITUS
     Route: 058
  4. OLMASARTAN [Concomitant]
     Indication: DIABETES MELLITUS
     Route: 048
  5. LEVOTHYROXINE. [Concomitant]
     Active Substance: LEVOTHYROXINE
     Route: 048
  6. SODIUM BICARBONATE. [Concomitant]
     Active Substance: SODIUM BICARBONATE
     Route: 048
  7. FUROSEMIDE. [Concomitant]
     Active Substance: FUROSEMIDE
     Route: 048
  8. VITAMIN B12 [Concomitant]
     Active Substance: CYANOCOBALAMIN
     Route: 048
  9. BRILINTA [Suspect]
     Active Substance: TICAGRELOR
     Indication: VENOUS THROMBOSIS LIMB
     Route: 048
     Dates: start: 201812
  10. CALCITROL [Concomitant]
     Route: 048
  11. ATORVASTATIN [Concomitant]
     Active Substance: ATORVASTATIN
     Route: 048
  12. MULTIVITAMIN [Concomitant]
     Active Substance: VITAMINS
     Route: 048
  13. VITAMIN D2 [Concomitant]
     Active Substance: ERGOCALCIFEROL
     Route: 048
  14. LISINOPRIL. [Concomitant]
     Active Substance: LISINOPRIL
     Route: 048
  15. NOVOLOG [Concomitant]
     Active Substance: INSULIN ASPART
     Indication: DIABETES MELLITUS
     Dosage: 15 TWO TIMES A DAY
     Route: 058

REACTIONS (11)
  - Weight increased [Unknown]
  - Dry skin [Not Recovered/Not Resolved]
  - Product formulation issue [Unknown]
  - Body height decreased [Unknown]
  - Skin fissures [Not Recovered/Not Resolved]
  - Memory impairment [Unknown]
  - Medication error [Unknown]
  - Visual impairment [Unknown]
  - Cataract [Unknown]
  - Intentional product misuse [Unknown]
  - Photophobia [Unknown]

NARRATIVE: CASE EVENT DATE: 201911
